FAERS Safety Report 21233116 (Version 3)
Quarter: 2022Q4

REPORT INFORMATION
  Report Type: Spontaneous
  Country: US (occurrence: US)
  Receive Date: 20220819
  Receipt Date: 20221020
  Transmission Date: 20230113
  Serious: Yes (Other)
  Sender: FDA-Public Use
  Company Number: US-FreseniusKabi-FK202211112

PATIENT
  Age: 52 Year
  Sex: Female
  Weight: 88 kg

DRUGS (12)
  1. SENSORCAINE-MPF WITH EPINEPHRINE [Suspect]
     Active Substance: BUPIVACAINE HYDROCHLORIDE\EPINEPHRINE BITARTRATE
     Indication: Arthroscopy
     Dosage: SENSORCAINE 0.25 PERCENT WITH 1:200,000 EPINEPHRINE 30ML SDV?DOSAGE: BUPIVACAINE?EPINEPHRINE (0.25%
     Route: 042
     Dates: start: 20220808, end: 20220808
  2. Lactated Ringers fluid [Concomitant]
     Indication: Product used for unknown indication
  3. Lactated Ringers fluid [Concomitant]
     Dosage: SENSORCAINE 0.25 PERCENT WITH 1:200,000 EPINEPHRINE 30ML SDV
     Route: 065
  4. ACETAMINOPHEN [Concomitant]
     Active Substance: ACETAMINOPHEN
     Indication: Product used for unknown indication
  5. DEXAMETHASONE [Concomitant]
     Active Substance: DEXAMETHASONE
     Indication: Product used for unknown indication
  6. CEFAZOLIN [Concomitant]
     Active Substance: CEFAZOLIN
     Indication: Product used for unknown indication
  7. EPHEDRINE [Concomitant]
     Active Substance: EPHEDRINE
     Indication: Product used for unknown indication
  8. FENTANYL [Concomitant]
     Active Substance: FENTANYL
     Indication: Product used for unknown indication
  9. KETOROLAC [Concomitant]
     Active Substance: KETOROLAC TROMETHAMINE
     Indication: Product used for unknown indication
  10. PROPOFOL [Concomitant]
     Active Substance: PROPOFOL
     Indication: Product used for unknown indication
  11. ONDANSETRON [Concomitant]
     Active Substance: ONDANSETRON
     Indication: Product used for unknown indication
  12. MAGNESIUM SULFATE IN WATER [Concomitant]
     Active Substance: MAGNESIUM SULFATE HEPTAHYDRATE
     Indication: Product used for unknown indication

REACTIONS (3)
  - Extrapyramidal disorder [Recovered/Resolved]
  - Tremor [Recovered/Resolved]
  - Therapeutic product effect increased [Unknown]

NARRATIVE: CASE EVENT DATE: 20220808
